FAERS Safety Report 20636867 (Version 1)
Quarter: 2022Q1

REPORT INFORMATION
  Report Type: Spontaneous
  Country: US (occurrence: None)
  Receive Date: 20220324
  Receipt Date: 20220324
  Transmission Date: 20220424
  Serious: Yes (Other)
  Sender: FDA-Public Use
  Company Number: None

PATIENT
  Age: 30 Year
  Sex: Female
  Weight: 133.36 kg

DRUGS (3)
  1. FLUOXETINE [Suspect]
     Active Substance: FLUOXETINE HYDROCHLORIDE
     Indication: Depression
  2. LISDEXAMFETAMINE [Suspect]
     Active Substance: LISDEXAMFETAMINE
     Indication: Binge eating
  3. CEPHALEXIN [Suspect]
     Active Substance: CEPHALEXIN
     Indication: Urinary tract infection

REACTIONS (6)
  - Maternal exposure during pregnancy [None]
  - Foetal exposure during pregnancy [None]
  - Pre-eclampsia [None]
  - Premature delivery [None]
  - Premature baby [None]
  - Postpartum haemorrhage [None]

NARRATIVE: CASE EVENT DATE: 20210103
